FAERS Safety Report 21610858 (Version 1)
Quarter: 2022Q4

REPORT INFORMATION
  Report Type: Report from Study
  Country: JP (occurrence: JP)
  Receive Date: 20221117
  Receipt Date: 20221117
  Transmission Date: 20230113
  Serious: Yes (Other)
  Sender: FDA-Public Use
  Company Number: JP-JNJFOC-20221118812

PATIENT
  Sex: Male

DRUGS (2)
  1. ERLEADA [Suspect]
     Active Substance: APALUTAMIDE
     Indication: Hormone-dependent prostate cancer
     Route: 048
  2. ERLEADA [Suspect]
     Active Substance: APALUTAMIDE
     Indication: Hormone-refractory prostate cancer
     Route: 048

REACTIONS (7)
  - Interstitial lung disease [Unknown]
  - Renal impairment [Unknown]
  - Fatigue [Unknown]
  - Hepatic function abnormal [Unknown]
  - Palpitations [Unknown]
  - Skin disorder [Unknown]
  - Off label use [Unknown]
